FAERS Safety Report 24250760 (Version 1)
Quarter: 2024Q3

REPORT INFORMATION
  Report Type: Spontaneous
  Country: US (occurrence: US)
  Receive Date: 20240826
  Receipt Date: 20240826
  Transmission Date: 20241016
  Serious: No
  Sender: MEDEXUS PHARMA
  Company Number: US-MEDEXUS PHARMA, INC.-2023MED00409

PATIENT
  Sex: Female

DRUGS (7)
  1. RASUVO [Suspect]
     Active Substance: METHOTREXATE SODIUM
     Indication: Systemic lupus erythematosus
     Dosage: 15 MG, 1X/WEEK
     Dates: start: 2022, end: 202305
  2. RASUVO [Suspect]
     Active Substance: METHOTREXATE SODIUM
     Indication: Rheumatoid arthritis
  3. FOLIC ACID [Concomitant]
     Active Substance: FOLIC ACID
  4. HYDROXYCHLOROQUINE [Concomitant]
     Active Substance: HYDROXYCHLOROQUINE
  5. PREDNISONE [Concomitant]
     Active Substance: PREDNISONE
  6. ZOLOFT [Concomitant]
     Active Substance: SERTRALINE HYDROCHLORIDE
  7. AMLODIPINE [Concomitant]
     Active Substance: AMLODIPINE BESYLATE
     Dosage: UNK

REACTIONS (1)
  - Liver function test decreased [Unknown]

NARRATIVE: CASE EVENT DATE: 20230101
